FAERS Safety Report 5562126-9 (Version None)
Quarter: 2007Q4

REPORT INFORMATION
  Report Type: 
  Country: None (occurrence: None)
  Receive Date: 20071215
  Receipt Date: 20061204
  Transmission Date: 20080405
  Serious: No
  Sender: FDA-Public Use
  Company Number: US-AMGEN-US196997

PATIENT
  Sex: Female
  Weight: 70.4 kg

DRUGS (6)
  1. ENBREL [Suspect]
     Indication: RHEUMATOID ARTHRITIS
     Route: 058
     Dates: start: 20060508
  2. CELEBREX [Suspect]
     Route: 065
     Dates: end: 20061013
  3. PLAQUENIL [Concomitant]
     Route: 065
  4. PREDNISONE [Concomitant]
     Route: 065
     Dates: end: 20060501
  5. PREDNISONE [Concomitant]
     Dates: start: 20061001
  6. METHOTREXATE [Concomitant]
     Route: 065
     Dates: end: 20051201

REACTIONS (2)
  - BODY TINEA [None]
  - ORAL CANDIDIASIS [None]
